FAERS Safety Report 5394001-7 (Version None)
Quarter: 2007Q3

REPORT INFORMATION
  Report Type: 
  Country: None (occurrence: None)
  Receive Date: 20070723
  Receipt Date: 20070105
  Transmission Date: 20080115
  Serious: No
  Sender: FDA-Public Use
  Company Number: A0634514A

PATIENT
  Sex: Male

DRUGS (3)
  1. AVANDIA [Suspect]
     Indication: DRUG USE FOR UNKNOWN INDICATION
     Route: 048
  2. METFORMIN HCL [Concomitant]
  3. LIPITOR [Concomitant]

REACTIONS (3)
  - EJECTION FRACTION DECREASED [None]
  - GENERALISED OEDEMA [None]
  - WEIGHT INCREASED [None]
